FAERS Safety Report 21764283 (Version 3)
Quarter: 2023Q1

REPORT INFORMATION
  Report Type: Spontaneous
  Country: US (occurrence: US)
  Receive Date: 20221222
  Receipt Date: 20230323
  Transmission Date: 20230418
  Serious: Yes (Other)
  Sender: FDA-Public Use
  Company Number: US-002147023-NVSC2022US293023

PATIENT
  Age: 35 Year
  Sex: Female
  Weight: 85.2 kg

DRUGS (6)
  1. KESIMPTA [Suspect]
     Active Substance: OFATUMUMAB
     Indication: Multiple sclerosis
     Dosage: UNK UNK, QMO
     Route: 058
     Dates: start: 20220414
  2. KESIMPTA [Suspect]
     Active Substance: OFATUMUMAB
     Dosage: UNK UNK, QMO
     Route: 058
     Dates: start: 20221114
  3. BUPROPION [Concomitant]
     Active Substance: BUPROPION
     Indication: Fatigue
     Dosage: 150 MG, QD (XL- EXTRA LONG)
     Route: 048
  4. BUPROPION [Concomitant]
     Active Substance: BUPROPION
     Dosage: 300 MG, QD (INCREASED FROM 150MG TO 300MG DAILY)
     Route: 048
     Dates: start: 20211110
  5. METHYLPHENIDATE [Concomitant]
     Active Substance: METHYLPHENIDATE
     Indication: Fatigue
     Dosage: 20 MG, BID
     Route: 048
     Dates: start: 20220303
  6. METHYLPHENIDATE [Concomitant]
     Active Substance: METHYLPHENIDATE
     Dosage: 20 MG, BID
     Route: 048
     Dates: start: 20220927

REACTIONS (3)
  - Neutropenia [Recovered/Resolved]
  - Gingival swelling [Unknown]
  - Gingival pain [Unknown]

NARRATIVE: CASE EVENT DATE: 20220909
